FAERS Safety Report 6381980-4 (Version None)
Quarter: 2009Q3

REPORT INFORMATION
  Report Type: 
  Country: None (occurrence: None)
  Receive Date: 20090930
  Receipt Date: 20090830
  Transmission Date: 20100115
  Serious: No
  Sender: FDA-Public Use
  Company Number: US-BAYER-200931476NA

PATIENT
  Sex: Female

DRUGS (1)
  1. AVELOX [Suspect]
     Indication: DRUG USE FOR UNKNOWN INDICATION

REACTIONS (5)
  - ALOPECIA [None]
  - DIZZINESS [None]
  - NEUROPATHY PERIPHERAL [None]
  - PAIN OF SKIN [None]
  - TENDON PAIN [None]
